FAERS Safety Report 9323446 (Version 1)
Quarter: 2013Q2

REPORT INFORMATION
  Report Type: Spontaneous
  Country: US (occurrence: US)
  Receive Date: 20130603
  Receipt Date: 20130603
  Transmission Date: 20140414
  Serious: No
  Sender: FDA-Public Use
  Company Number: US-PFIZER INC-2013164832

PATIENT
  Age: 24 Year
  Sex: Female

DRUGS (8)
  1. XELJANZ [Suspect]
     Dosage: 5 MG, 2X/DAY
     Route: 048
  2. HYDROXYCHLOROQUINE [Concomitant]
     Dosage: 200 MG
  3. CELEXA [Concomitant]
     Dosage: 10 MG
  4. OMEPRAZOLE [Concomitant]
     Dosage: 20 MG
  5. METHOTREXATE [Concomitant]
     Dosage: 2.5 MG
  6. CALCIUM [Concomitant]
     Dosage: 500
  7. PRENATAL [Concomitant]
     Dosage: 1 DF
  8. CLARITIN [Concomitant]
     Dosage: 10 MG

REACTIONS (1)
  - Abdominal pain upper [Unknown]
